FAERS Safety Report 7434597-4 (Version None)
Quarter: 2011Q2

REPORT INFORMATION
  Report Type: 
  Country: None (occurrence: None)
  Receive Date: 20110425
  Receipt Date: 20110411
  Transmission Date: 20111010
  Serious: Yes (Other)
  Sender: FDA-Public Use
  Company Number: US-AMGEN-USASP2011019275

PATIENT
  Age: 32 Year
  Sex: Female

DRUGS (2)
  1. ENBREL [Suspect]
     Indication: RHEUMATOID ARTHRITIS
     Dosage: 50 MG, QWK
     Dates: start: 20110406
  2. METHOTREXATE [Concomitant]
     Dosage: UNK
     Dates: start: 20100101

REACTIONS (4)
  - ABDOMINAL PAIN LOWER [None]
  - VISION BLURRED [None]
  - HAEMOPTYSIS [None]
  - DIZZINESS [None]
